FAERS Safety Report 8862539 (Version 1)
Quarter: 2012Q4

REPORT INFORMATION
  Report Type: 
  Country: JP (occurrence: JP)
  Receive Date: 20121026
  Receipt Date: 20121026
  Transmission Date: 20130627
  Serious: Yes (Death)
  Sender: FDA-Public Use
  Company Number: JP-ELI_LILLY_AND_COMPANY-JP201207002529

PATIENT
  Age: 67 Year
  Sex: Male

DRUGS (1)
  1. ALIMTA [Suspect]
     Indication: METASTATIC NEOPLASM
     Dosage: 770 mg, UNK
     Route: 042
     Dates: start: 20120703, end: 20120703

REACTIONS (2)
  - Ileus [Fatal]
  - Disseminated intravascular coagulation [Fatal]
